FAERS Safety Report 8859266 (Version 1)
Quarter: 2012Q4

REPORT INFORMATION
  Report Type: 
  Country: JP (occurrence: JP)
  Receive Date: 20121024
  Receipt Date: 20121024
  Transmission Date: 20130627
  Serious: Yes (Other)
  Sender: FDA-Public Use
  Company Number: JP-SANOFI-AVENTIS-2012SA077010

PATIENT
  Age: 69 Year
  Sex: Male
  Weight: 52 kg

DRUGS (5)
  1. INSULIN GLARGINE [Suspect]
     Indication: TYPE I DIABETES MELLITUS
     Route: 065
  2. INSULIN ASPART [Suspect]
     Indication: TYPE I DIABETES MELLITUS
     Dosage: Dose:8 unit(s)
     Route: 065
  3. INSULIN ASPART [Suspect]
     Indication: TYPE I DIABETES MELLITUS
     Dosage: Dose:25 unit(s)
     Route: 065
  4. FENTANYL [Concomitant]
  5. WARFARIN POTASSIUM [Concomitant]

REACTIONS (3)
  - Hypoglycaemia [Recovering/Resolving]
  - Loss of consciousness [Recovered/Resolved]
  - Fall [Unknown]
